FAERS Safety Report 14908356 (Version 1)
Quarter: 2018Q2

REPORT INFORMATION
  Report Type: Spontaneous
  Country: DE (occurrence: DE)
  Receive Date: 20180517
  Receipt Date: 20180517
  Transmission Date: 20180711
  Serious: Yes (Death, Hospitalization, Other)
  Sender: FDA-Public Use
  Company Number: DE-WEST-WARD PHARMACEUTICALS CORP.-DE-H14001-18-03933

PATIENT
  Age: 69 Year
  Sex: Female
  Weight: 64 kg

DRUGS (5)
  1. FORTECORTIN [Suspect]
     Active Substance: DEXAMETHASONE
     Indication: OVARIAN CANCER
     Dosage: LAST DOSE PRIOR TO EVENT 14/SEP/2012
     Route: 042
  2. PACLITAXEL. [Suspect]
     Active Substance: PACLITAXEL
     Indication: OVARIAN CANCER
     Dosage: LAST DOSE PRIOR TO EVENT 14/SEP/2012
     Route: 042
  3. ANTRA [Suspect]
     Active Substance: OMEPRAZOLE
     Indication: OVARIAN CANCER
     Dosage: LAST DOSE PRIOR TO EVENT 26/SEP/2012 ()
     Route: 048
  4. BEVACIZUMAB. [Suspect]
     Active Substance: BEVACIZUMAB
     Indication: OVARIAN CANCER
     Dosage: LAST DOSE PRIOR TO EVENT 14/SEP/2012
     Route: 042
  5. CARBOPLATIN. [Suspect]
     Active Substance: CARBOPLATIN
     Indication: OVARIAN CANCER
     Dosage: LAST DOSE PRIOR TO EVENT 14/SEP/2012
     Route: 042

REACTIONS (10)
  - Parkinson^s disease [Unknown]
  - Focal dyscognitive seizures [Unknown]
  - Pain [Unknown]
  - Arthralgia [Recovered/Resolved]
  - Death [Fatal]
  - Renal failure [Unknown]
  - Vomiting [Unknown]
  - Thrombosis [Recovered/Resolved]
  - Bladder dysfunction [Unknown]
  - Joint swelling [Recovered/Resolved]

NARRATIVE: CASE EVENT DATE: 20120927
